FAERS Safety Report 6996986-1 (Version None)
Quarter: 2010Q3

REPORT INFORMATION
  Report Type: 
  Country: None (occurrence: None)
  Receive Date: 20100918
  Receipt Date: 20090921
  Transmission Date: 20110219
  Serious: No
  Sender: FDA-Public Use
  Company Number: US-WYE-H10758909

PATIENT
  Sex: Female
  Weight: 77.63 kg

DRUGS (11)
  1. PRISTIQ [Suspect]
     Route: 048
     Dates: start: 20090812, end: 20090901
  2. SINGULAIR [Concomitant]
  3. PATANOL [Concomitant]
  4. CALCIUM [Concomitant]
  5. VITAMIN B-12 [Concomitant]
  6. DIOVAN [Concomitant]
  7. CLARITIN [Concomitant]
  8. NASONEX [Concomitant]
  9. VITAMIN D [Concomitant]
  10. NUVARING [Concomitant]
  11. VOLTAREN [Concomitant]

REACTIONS (1)
  - VAGINAL HAEMORRHAGE [None]
